FAERS Safety Report 4530312-2 (Version None)
Quarter: 2004Q4

REPORT INFORMATION
  Report Type: 
  Country: None (occurrence: None)
  Receive Date: 20041215
  Receipt Date: 20041130
  Transmission Date: 20050328
  Serious: No
  Sender: FDA-Public Use
  Company Number: 9393

PATIENT
  Age: 12 Year
  Sex: Male

DRUGS (1)
  1. AMIODARONE [Suspect]
     Indication: ARRHYTHMIA SUPRAVENTRICULAR

REACTIONS (8)
  - AFFECT LABILITY [None]
  - AGITATION [None]
  - CARDIOVASCULAR DISORDER [None]
  - GOITRE [None]
  - HYPERTHYROIDISM [None]
  - NERVOUSNESS [None]
  - TREMOR [None]
  - WEIGHT DECREASED [None]
